FAERS Safety Report 25975572 (Version 1)
Quarter: 2025Q4

REPORT INFORMATION
  Report Type: Spontaneous
  Country: US (occurrence: US)
  Receive Date: 20251029
  Receipt Date: 20251029
  Transmission Date: 20260118
  Serious: Yes (Hospitalization)
  Sender: EISAI
  Company Number: US-Eisai-EC-2025-198705

PATIENT
  Age: 75 Year
  Sex: Male

DRUGS (1)
  1. LEQEMBI [Suspect]
     Active Substance: LECANEMAB-IRMB
     Indication: Dementia Alzheimer^s type
     Dosage: DOSE UNKNOWN
     Route: 042
     Dates: end: 2025

REACTIONS (3)
  - Headache [Unknown]
  - Chest pain [Unknown]
  - Nausea [Unknown]

NARRATIVE: CASE EVENT DATE: 20251010
